FAERS Safety Report 9170128 (Version 2)
Quarter: 2013Q2

REPORT INFORMATION
  Report Type: Spontaneous
  Country: GB (occurrence: None)
  Receive Date: 20130311
  Receipt Date: 20130415
  Transmission Date: 20140414
  Serious: Yes (Hospitalization)
  Sender: FDA-Public Use
  Company Number: 2013GR0084

PATIENT
  Age: 64 Year
  Sex: Male

DRUGS (4)
  1. ANAKINRA [Suspect]
     Indication: RHEUMATOID ARTHRITIS
     Dates: start: 200909, end: 201009
  2. ADALIMUMAB [Suspect]
     Indication: RHEUMATOID ARTHRITIS
  3. PREDNISOLONE (PREDNISOLONE) [Concomitant]
  4. METHOTREXATE (METHOTREXATE) [Concomitant]

REACTIONS (4)
  - Acute myeloid leukaemia [None]
  - Therapy cessation [None]
  - Rheumatoid arthritis [None]
  - Disease recurrence [None]
